FAERS Safety Report 8791186 (Version 1)
Quarter: 2012Q4

REPORT INFORMATION
  Report Type: Spontaneous
  Country: US (occurrence: None)
  Receive Date: 20120913
  Receipt Date: 20120913
  Transmission Date: 20130627
  Serious: Yes (Life-Threatening, Disabling, Other)
  Sender: FDA-Public Use
  Company Number: None

PATIENT
  Age: 55 Year
  Sex: Female
  Weight: 70.31 kg

DRUGS (2)
  1. LAMICTAL [Suspect]
     Indication: OFF LABEL USE
     Dosage: 100mg  once/day  oral
     Route: 048
     Dates: start: 20120606, end: 20120630
  2. LAMICTAL [Suspect]
     Indication: DRUG USE FOR UNKNOWN INDICATION
     Dosage: 100mg  once/day  oral
     Route: 048
     Dates: start: 20120606, end: 20120630

REACTIONS (13)
  - Vomiting [None]
  - Mood altered [None]
  - Depression [None]
  - Crying [None]
  - Dehydration [None]
  - Sleep disorder [None]
  - Coordination abnormal [None]
  - Gait disturbance [None]
  - Balance disorder [None]
  - Visual impairment [None]
  - Amnesia [None]
  - Cognitive disorder [None]
  - Arthralgia [None]
